FAERS Safety Report 8858663 (Version 3)
Quarter: 2012Q4

REPORT INFORMATION
  Report Type: 
  Country: US (occurrence: US)
  Receive Date: 20121024
  Receipt Date: 20121206
  Transmission Date: 20130627
  Serious: Yes (Hospitalization, Other)
  Sender: FDA-Public Use
  Company Number: US-ROCHE-1035656

PATIENT
  Age: 15 Year
  Sex: Male
  Weight: 95.34 kg

DRUGS (1)
  1. ACCUTANE [Suspect]
     Indication: ACNE
     Dosage: 40 mg to 80 mg
     Route: 065
     Dates: start: 198401, end: 19840629

REACTIONS (8)
  - Colitis ulcerative [Unknown]
  - Anxiety [Unknown]
  - Inflammatory bowel disease [Unknown]
  - Eczema [Unknown]
  - Xerosis [Unknown]
  - Irritable bowel syndrome [Unknown]
  - Cheilitis [Unknown]
  - Musculoskeletal pain [Unknown]
